FAERS Safety Report 9168808 (Version 1)
Quarter: 2013Q1

REPORT INFORMATION
  Report Type: Spontaneous
  Country: US (occurrence: None)
  Receive Date: 20130305
  Receipt Date: 20130305
  Transmission Date: 20140127
  Serious: Yes (Other)
  Sender: FDA-Public Use
  Company Number: 2013/037

PATIENT
  Age: 60 Year
  Sex: Female

DRUGS (4)
  1. AMLODIPINE (NO PREF. NAME) 5 MG [Suspect]
     Route: 048
     Dates: start: 20121221, end: 20130127
  2. CENTELLA ASIATICA [Concomitant]
  3. GINKGO BILOBA [Concomitant]
  4. ZOPICLONE [Concomitant]

REACTIONS (3)
  - Eyelid oedema [None]
  - Swelling face [None]
  - Hair texture abnormal [None]
